FAERS Safety Report 7470865-8 (Version None)
Quarter: 2011Q2

REPORT INFORMATION
  Report Type: 
  Country: None (occurrence: None)
  Receive Date: 20110510
  Receipt Date: 20110505
  Transmission Date: 20111010
  Serious: Yes (Death)
  Sender: FDA-Public Use
  Company Number: US-PFIZER INC-2011093187

PATIENT
  Age: 24 Year
  Sex: Male

DRUGS (2)
  1. RISPERDAL [Concomitant]
     Indication: PSYCHOTIC DISORDER
     Dosage: UNK
  2. GEODON [Suspect]
     Indication: PSYCHOTIC DISORDER
     Dosage: UNK
     Route: 030

REACTIONS (1)
  - DRUG INTERACTION [None]
